FAERS Safety Report 17478736 (Version 3)
Quarter: 2024Q1

REPORT INFORMATION
  Report Type: Spontaneous
  Country: CZ (occurrence: CZ)
  Receive Date: 20200228
  Receipt Date: 20240220
  Transmission Date: 20240410
  Serious: Yes (Disabling, Other)
  Sender: FDA-Public Use
  Company Number: CZ-002147023-NVSC2020CZ001810

PATIENT
  Sex: Male

DRUGS (4)
  1. ZOLEDRONIC ACID [Suspect]
     Active Substance: ZOLEDRONIC ACID
     Indication: Non-Hodgkin^s lymphoma
     Dosage: UNK
     Route: 065
     Dates: start: 201301
  2. DOCETAXEL [Suspect]
     Active Substance: DOCETAXEL\DOCETAXEL ANHYDROUS
     Indication: Non-Hodgkin^s lymphoma
     Dosage: 75 MILLIGRAM/SQ. METER, Q3W
     Route: 065
     Dates: start: 201301
  3. DOCETAXEL [Suspect]
     Active Substance: DOCETAXEL\DOCETAXEL ANHYDROUS
     Indication: Prostate cancer
     Dosage: 75 MILLIGRAM/SQ. METER (CYCLICAL,3 WEEKS REGIMEN)
     Route: 065
     Dates: start: 201301
  4. DOCETAXEL [Suspect]
     Active Substance: DOCETAXEL\DOCETAXEL ANHYDROUS
     Indication: Metastases to bone

REACTIONS (3)
  - Cholecystitis [Recovered/Resolved]
  - Prostatic specific antigen increased [Recovered/Resolved]
  - Product use in unapproved indication [Unknown]
